FAERS Safety Report 4425163-3 (Version None)
Quarter: 2004Q3

REPORT INFORMATION
  Report Type: 
  Country: None (occurrence: None)
  Receive Date: 20040809
  Receipt Date: 20040802
  Transmission Date: 20050211
  Serious: Yes (Disabling)
  Sender: FDA-Public Use
  Company Number: 2004S1000058

PATIENT
  Age: 35 Year
  Sex: Male

DRUGS (1)
  1. ACITRETIN (ACITRETIN) [Suspect]
     Indication: PSORIASIS
     Dosage: 25 MG; QD; PO
     Route: 048
     Dates: start: 20040316, end: 20040609

REACTIONS (2)
  - ALANINE AMINOTRANSFERASE INCREASED [None]
  - HEADACHE [None]
